FAERS Safety Report 5682739-3 (Version None)
Quarter: 2008Q1

REPORT INFORMATION
  Report Type: 
  Country: None (occurrence: None)
  Receive Date: 20080326
  Receipt Date: 20080326
  Transmission Date: 20080703
  Serious: Yes (Hospitalization)
  Sender: FDA-Public Use
  Company Number: None

PATIENT
  Sex: Male
  Weight: 64.5 kg

DRUGS (2)
  1. DACARBAZINE [Suspect]
     Indication: MALIGNANT MELANOMA
     Dosage: 1600MG, IV Q21DAYS
     Dates: start: 20080305
  2. DASATINIB - 70MG - BRISTOL -MYERS SQUIBB [Suspect]
     Indication: MALIGNANT MELANOMA
     Dosage: 70MG ORALLY BID
     Route: 048
     Dates: start: 20080306, end: 20080321

REACTIONS (1)
  - PLEURAL EFFUSION [None]
